FAERS Safety Report 5139701-9 (Version None)
Quarter: 2006Q4

REPORT INFORMATION
  Report Type: 
  Country: None (occurrence: None)
  Receive Date: 20061024
  Receipt Date: 20061006
  Transmission Date: 20070319
  Serious: Yes (Hospitalization)
  Sender: FDA-Public Use
  Company Number: 2006US002227

PATIENT
  Age: 44 Year
  Sex: Male

DRUGS (9)
  1. AMBISOME [Suspect]
     Indication: DRUG USE FOR UNKNOWN INDICATION
     Dosage: 250 MG, UID/QD, IV NOS
     Route: 042
     Dates: start: 20060613, end: 20060617
  2. CYTARABINE [Suspect]
     Indication: ACUTE MYELOID LEUKAEMIA
     Dosage: 400 MG, UID/QD, IV NOS
     Route: 042
     Dates: start: 20060609, end: 20060616
  3. FLAGYL [Suspect]
     Indication: STAPHYLOCOCCAL INFECTION
     Dosage: 1500 MG, TID, ORAL
     Route: 048
     Dates: start: 20060617, end: 20060705
  4. CIFLOX (CIPROFLOXACIN HYDROCHLORIDE) [Concomitant]
  5. CERUBIDINE [Concomitant]
  6. TRIFLUCAN (FLUCONAZOLE) [Concomitant]
  7. ACYCLOVIR [Concomitant]
  8. CANCIDAS (CASPOFUNGIN) [Concomitant]
  9. ALLOPURINOL [Concomitant]

REACTIONS (6)
  - CHOLELITHIASIS [None]
  - CYTOLYTIC HEPATITIS [None]
  - DIARRHOEA [None]
  - DRUG TOXICITY [None]
  - HEPATITIS CHOLESTATIC [None]
  - HEPATOMEGALY [None]
